FAERS Safety Report 21993753 (Version 2)
Quarter: 2023Q1

REPORT INFORMATION
  Report Type: Spontaneous
  Country: IR (occurrence: IR)
  Receive Date: 20230215
  Receipt Date: 20230301
  Transmission Date: 20230418
  Serious: Yes (Death, Hospitalization, Other)
  Sender: FDA-Public Use
  Company Number: IR-SA-2023SA050176

PATIENT
  Age: 5 Month
  Sex: Female
  Weight: 6 kg

DRUGS (1)
  1. MYOZYME [Suspect]
     Active Substance: ALGLUCOSIDASE ALFA
     Indication: Glycogen storage disease type II
     Dosage: 20 MG/KG
     Route: 042
     Dates: start: 20220904

REACTIONS (2)
  - Respiratory distress [Fatal]
  - Pneumonia influenzal [Fatal]
